FAERS Safety Report 5279253-6 (Version None)
Quarter: 2007Q1

REPORT INFORMATION
  Report Type: 
  Country: None (occurrence: None)
  Receive Date: 20070328
  Receipt Date: 20070320
  Transmission Date: 20070707
  Serious: Yes (Other)
  Sender: FDA-Public Use
  Company Number: PHBS2007IE02883

PATIENT
  Age: 6 Year

DRUGS (1)
  1. SIMULECT [Suspect]
     Indication: RENAL TRANSPLANT
     Dosage: UNK, ONCE/SINGLE
     Dates: start: 20060101

REACTIONS (3)
  - ACUTE PULMONARY OEDEMA [None]
  - C-REACTIVE PROTEIN INCREASED [None]
  - LIFE SUPPORT [None]
